FAERS Safety Report 9215938 (Version 2)
Quarter: 2013Q2

REPORT INFORMATION
  Report Type: Spontaneous
  Country: IT (occurrence: None)
  Receive Date: 20130405
  Receipt Date: 20130409
  Transmission Date: 20140414
  Serious: Yes (Hospitalization)
  Sender: FDA-Public Use
  Company Number: AUR-APL-2013-02725

PATIENT
  Age: 59 Year
  Sex: Male

DRUGS (2)
  1. LEVOFLOXACIN [Suspect]
     Indication: OROPHARYNGEAL PAIN
     Dosage: TOTAL
     Route: 048
     Dates: start: 20130206, end: 20130206
  2. TACHIPIRINA (PARACETAMOL) [Concomitant]

REACTIONS (2)
  - Face oedema [None]
  - Tongue oedema [None]
